FAERS Safety Report 6388727-6 (Version None)
Quarter: 2009Q4

REPORT INFORMATION
  Report Type: 
  Country: None (occurrence: None)
  Receive Date: 20091002
  Receipt Date: 20091002
  Transmission Date: 20100525
  Serious: Yes (Other)
  Sender: FDA-Public Use
  Company Number: None

PATIENT
  Age: 58 Year
  Sex: Male
  Weight: 83.9154 kg

DRUGS (1)
  1. FRED'S NASAL SPRAY OXYMETAZOLINE HYDROCHLORIDE FRED'S INC. [Suspect]
     Indication: NASAL CONGESTION
     Dosage: 2 OR 3 SPRAYS 4 OR 5 NIGHTS WEEK NASAL
     Route: 045
     Dates: start: 19850101, end: 20090927

REACTIONS (1)
  - SLEEP APNOEA SYNDROME [None]
